FAERS Safety Report 13576873 (Version 2)
Quarter: 2018Q1

REPORT INFORMATION
  Report Type: Spontaneous
  Country: US (occurrence: US)
  Receive Date: 20170524
  Receipt Date: 20180228
  Transmission Date: 20180508
  Serious: Yes (Death, Hospitalization, Other)
  Sender: FDA-Public Use
  Company Number: US-009507513-1705USA011746

PATIENT
  Sex: Female
  Weight: 191.2 kg

DRUGS (7)
  1. METFORMIN [Suspect]
     Active Substance: METFORMIN HYDROCHLORIDE
     Indication: DIABETES MELLITUS
     Dosage: 1000 MG, BID
     Route: 048
  2. JANUMET [Suspect]
     Active Substance: METFORMIN HYDROCHLORIDE\SITAGLIPTIN PHOSPHATE
     Indication: DIABETES MELLITUS
     Dosage: 50/500 ONE BID
     Route: 048
     Dates: start: 20070509, end: 200801
  3. JANUMET [Suspect]
     Active Substance: METFORMIN HYDROCHLORIDE\SITAGLIPTIN PHOSPHATE
     Dosage: 50/1000 ONE BID
     Route: 048
     Dates: start: 200802, end: 20131226
  4. BYETTA [Suspect]
     Active Substance: EXENATIDE
     Indication: DIABETES MELLITUS
     Dosage: 5MCG X 1 MONTH
     Route: 058
     Dates: start: 20061025, end: 20061129
  5. BYETTA [Suspect]
     Active Substance: EXENATIDE
     Dosage: 10 MCG BID
     Route: 058
     Dates: start: 20061129, end: 20080108
  6. BYETTA [Suspect]
     Active Substance: EXENATIDE
     Dosage: 10MCG QD AS TOLERATED
     Route: 058
     Dates: start: 20061025, end: 20091020
  7. BYETTA [Suspect]
     Active Substance: EXENATIDE
     Dosage: 5MCG/0.02 BID
     Route: 058
     Dates: start: 20091211, end: 201003

REACTIONS (28)
  - Oesophageal candidiasis [Unknown]
  - Cholecystitis acute [Recovered/Resolved]
  - Arthritis [Unknown]
  - Gastrooesophageal reflux disease [Recovered/Resolved]
  - Urinary retention [Unknown]
  - Malnutrition [Recovering/Resolving]
  - Death [Fatal]
  - Pancreatitis acute [Recovered/Resolved]
  - Type 1 diabetes mellitus [Not Recovered/Not Resolved]
  - Arthropathy [Recovered/Resolved]
  - Diabetes mellitus [Unknown]
  - Haemorrhagic anaemia [Unknown]
  - Nausea [Not Recovered/Not Resolved]
  - Cholelithiasis [Recovered/Resolved]
  - Hypomania [Unknown]
  - Bacteraemia [Unknown]
  - Pancreatitis acute [Recovered/Resolved]
  - Adrenal insufficiency [Recovering/Resolving]
  - Pancreatic failure [Unknown]
  - Gastric ulcer [Recovered/Resolved]
  - Hernia repair [Unknown]
  - Anastomotic ulcer haemorrhage [Unknown]
  - Deep vein thrombosis [Unknown]
  - Periarthritis [Unknown]
  - Adenocarcinoma pancreas [Not Recovered/Not Resolved]
  - Portal vein thrombosis [Unknown]
  - Dehydration [Unknown]
  - Impaired gastric emptying [Unknown]

NARRATIVE: CASE EVENT DATE: 2013
